FAERS Safety Report 9200629 (Version 3)
Quarter: 2013Q3

REPORT INFORMATION
  Report Type: Spontaneous
  Country: US (occurrence: US)
  Receive Date: 20130330
  Receipt Date: 20130902
  Transmission Date: 20140515
  Serious: No
  Sender: FDA-Public Use
  Company Number: US-PFIZER INC-2013100939

PATIENT
  Sex: Male

DRUGS (1)
  1. LYRICA [Suspect]
     Indication: NERVE INJURY
     Dosage: UNK

REACTIONS (5)
  - Drug withdrawal syndrome [Recovering/Resolving]
  - Influenza like illness [Recovering/Resolving]
  - Anxiety [Unknown]
  - Nerve injury [Unknown]
  - Therapeutic response unexpected [Unknown]
